FAERS Safety Report 9428044 (Version 1)
Quarter: 2013Q3

REPORT INFORMATION
  Report Type: Spontaneous
  Country: US (occurrence: US)
  Receive Date: 20130730
  Receipt Date: 20130730
  Transmission Date: 20140515
  Serious: No
  Sender: FDA-Public Use
  Company Number: US-ABBOTT-12P-163-0962141-00

PATIENT
  Age: 61 Year
  Sex: Male
  Weight: 163.44 kg

DRUGS (10)
  1. NIASPAN (COATED) [Suspect]
     Indication: HIGH DENSITY LIPOPROTEIN DECREASED
     Dates: start: 2004
  2. NIASPAN (COATED) [Suspect]
     Indication: BLOOD TRIGLYCERIDES INCREASED
     Dates: end: 20120725
  3. TRICOR [Concomitant]
     Indication: PRODUCT USED FOR UNKNOWN INDICATION
  4. ASA [Concomitant]
     Indication: PRODUCT USED FOR UNKNOWN INDICATION
  5. QUINAPRIL [Concomitant]
     Indication: HYPERTENSION
  6. COREG [Concomitant]
     Indication: HYPERTENSION
  7. AMLODIPINE [Concomitant]
     Indication: HYPERTENSION
  8. BENICAR HCT [Concomitant]
     Indication: HYPERTENSION
     Dosage: 1 IN 1 DAY, 40/12.5
  9. XANAX [Concomitant]
     Indication: ANXIETY
  10. CENTRUM SILVER [Concomitant]
     Indication: PRODUCT USED FOR UNKNOWN INDICATION

REACTIONS (6)
  - Electrocardiogram abnormal [Not Recovered/Not Resolved]
  - Flushing [Not Recovered/Not Resolved]
  - Erythema [Not Recovered/Not Resolved]
  - Feeling abnormal [Recovered/Resolved]
  - Drug ineffective [Not Recovered/Not Resolved]
  - Medication error [Unknown]
